FAERS Safety Report 6357546-9 (Version None)
Quarter: 2009Q3

REPORT INFORMATION
  Report Type: 
  Country: None (occurrence: None)
  Receive Date: 20090911
  Receipt Date: 20090902
  Transmission Date: 20100115
  Serious: Yes (Hospitalization)
  Sender: FDA-Public Use
  Company Number: 230438J09USA

PATIENT
  Age: 55 Year
  Sex: Female

DRUGS (3)
  1. REBIF [Suspect]
     Indication: MULTIPLE SCLEROSIS
     Dosage: SUBCUTANEOUS
     Route: 058
     Dates: start: 20090805, end: 20090827
  2. DETROL LA [Concomitant]
  3. LISINOPRIL WITH HYDROCHLOROTHIAZIDE (PRINZIDE /00977901/) [Concomitant]

REACTIONS (7)
  - AMNESIA [None]
  - ASTHENIA [None]
  - CHEST PAIN [None]
  - CONFUSIONAL STATE [None]
  - FATIGUE [None]
  - PARAESTHESIA [None]
  - URINARY TRACT INFECTION [None]
